FAERS Safety Report 7277336-2 (Version None)
Quarter: 2010Q4

REPORT INFORMATION
  Report Type: 
  Country: None (occurrence: None)
  Receive Date: 20101201
  Receipt Date: 20100907
  Transmission Date: 20110411
  Serious: Yes (Other)
  Sender: FDA-Public Use
  Company Number: 311823

PATIENT
  Age: 46 Year
  Sex: Female
  Weight: 63.5 kg

DRUGS (4)
  1. NOVOLOG [Suspect]
     Indication: TYPE 1 DIABETES MELLITUS
     Dosage: SUBCUTAN.-PUMP
     Route: 058
     Dates: start: 20030101
  2. TEGRETOL [Concomitant]
  3. CALCIUM (CALCIUM) [Concomitant]
  4. ASPIRIN [Concomitant]

REACTIONS (3)
  - BLOOD GLUCOSE INCREASED [None]
  - DYSPNOEA [None]
  - KETONURIA [None]
